FAERS Safety Report 18101584 (Version 1)
Quarter: 2020Q3

REPORT INFORMATION
  Report Type: Spontaneous
  Country: GB (occurrence: GB)
  Receive Date: 20200801
  Receipt Date: 20200801
  Transmission Date: 20201103
  Serious: Yes (Other)
  Sender: FDA-Public Use
  Company Number: NVSC2020GB214584

PATIENT

DRUGS (1)
  1. ENTRESTO [Suspect]
     Active Substance: SACUBITRIL\VALSARTAN
     Indication: PRODUCT USED FOR UNKNOWN INDICATION
     Dosage: 1 DF, BID
     Route: 065
     Dates: start: 20190116, end: 20190208

REACTIONS (5)
  - Renal function test abnormal [Unknown]
  - Liver function test abnormal [Unknown]
  - Hyperkalaemia [Unknown]
  - Hypotension [Unknown]
  - Blood potassium increased [Unknown]
